FAERS Safety Report 9155665 (Version 1)
Quarter: 2013Q1

REPORT INFORMATION
  Report Type: Spontaneous
  Country: KR (occurrence: KR)
  Receive Date: 20130311
  Receipt Date: 20130311
  Transmission Date: 20140127
  Serious: Yes (Hospitalization)
  Sender: FDA-Public Use
  Company Number: PHHY2013KR021420

PATIENT
  Age: 54 Year
  Sex: Male

DRUGS (3)
  1. MYCOPHENOLATE MOFETIL [Suspect]
     Indication: IMMUNOSUPPRESSION
     Dosage: 1500 MG, DAY
  2. MYCOPHENOLATE MOFETIL [Suspect]
     Dosage: 1000 MG, PER DAY
  3. PREDNISOLONE [Suspect]
     Indication: IMMUNOSUPPRESSION
     Dosage: 5 MG, DAY
     Route: 048

REACTIONS (11)
  - Pericardial effusion [Unknown]
  - Pleural effusion [Unknown]
  - Atelectasis [Unknown]
  - Myalgia [Recovering/Resolving]
  - Lymphoid tissue hyperplasia [Unknown]
  - Bacterial pericarditis [Unknown]
  - Pyrexia [Recovering/Resolving]
  - Dyspnoea [Unknown]
  - Acid fast bacilli infection [Unknown]
  - Mycobacterium kansasii infection [Unknown]
  - Haemorrhage [Unknown]
